FAERS Safety Report 15844694 (Version 2)
Quarter: 2019Q1

REPORT INFORMATION
  Report Type: Spontaneous
  Country: GB (occurrence: GB)
  Receive Date: 20190118
  Receipt Date: 20190123
  Transmission Date: 20190417
  Serious: Yes (Other)
  Sender: FDA-Public Use
  Company Number: GB-ASCEND THERAPEUTICS-2061473

PATIENT
  Age: 51 Year
  Sex: Female

DRUGS (4)
  1. ESTROGEL [Suspect]
     Active Substance: ESTRADIOL
     Indication: MENOPAUSE
     Route: 061
     Dates: start: 20181110, end: 20181213
  2. ESTROGEL [Concomitant]
     Active Substance: ESTRADIOL
  3. VITAMIN D [Concomitant]
     Active Substance: CHOLECALCIFEROL
  4. NORETHISTERONE (NORETHISTERONE) [Concomitant]
     Active Substance: NORETHINDRONE

REACTIONS (8)
  - Anxiety [Recovering/Resolving]
  - Migraine [Recovering/Resolving]
  - Photopsia [Recovering/Resolving]
  - Blood pressure increased [Recovering/Resolving]
  - Pruritus [Recovering/Resolving]
  - Hot flush [Recovering/Resolving]
  - Arthralgia [Recovering/Resolving]
  - Product substitution issue [Unknown]

NARRATIVE: CASE EVENT DATE: 20181113
